FAERS Safety Report 9754753 (Version 1)
Quarter: 2013Q4

REPORT INFORMATION
  Report Type: Spontaneous
  Country: US (occurrence: US)
  Receive Date: 20131213
  Receipt Date: 20131213
  Transmission Date: 20140711
  Serious: No
  Sender: FDA-Public Use
  Company Number: US-GLAXOSMITHKLINE-A1005203A

PATIENT
  Age: 25 Year
  Sex: Female

DRUGS (2)
  1. NICODERM CQ CLEAR 14MG [Suspect]
     Indication: EX-TOBACCO USER
     Dates: start: 20121211, end: 20121212
  2. NICORETTE OTC, UNSPECIFIED [Suspect]
     Indication: EX-TOBACCO USER

REACTIONS (7)
  - Gingival pain [Recovered/Resolved]
  - Application site rash [Not Recovered/Not Resolved]
  - Rash [Not Recovered/Not Resolved]
  - Erythema [Not Recovered/Not Resolved]
  - Application site pain [Not Recovered/Not Resolved]
  - Hypersensitivity [Not Recovered/Not Resolved]
  - Gingival bleeding [Recovered/Resolved]
